FAERS Safety Report 8119569-9 (Version None)
Quarter: 2012Q1

REPORT INFORMATION
  Report Type: 
  Country: None (occurrence: None)
  Receive Date: 20120207
  Receipt Date: 20120131
  Transmission Date: 20120608
  Serious: Yes (Other)
  Sender: FDA-Public Use
  Company Number: PHHY2012CA003758

PATIENT
  Sex: Female

DRUGS (9)
  1. VITAMIN D [Concomitant]
     Dosage: UNK UKN, UNK
  2. ASAPHEN [Concomitant]
     Dosage: UNK UKN, UNK
  3. ARICEPT [Concomitant]
     Dosage: UNK UKN, UNK
  4. SYNTHROID [Concomitant]
     Dosage: UNK UKN, UNK
  5. ZOLEDRONOC ACID [Suspect]
     Indication: OSTEOPOROSIS
     Dosage: UNK UKN, UNK
     Route: 042
     Dates: start: 20110217
  6. CATAPRES [Concomitant]
     Dosage: UNK UKN, UNK
  7. CALCIUM [Concomitant]
     Dosage: UNK UKN, UNK
     Dates: end: 20110401
  8. MIDODRINE HYDROCHLORIDE [Concomitant]
     Dosage: UNK UKN, UNK
  9. COLACE [Concomitant]
     Dosage: UNK UKN, UNK

REACTIONS (2)
  - FEMUR FRACTURE [None]
  - FALL [None]
